FAERS Safety Report 16647270 (Version 2)
Quarter: 2019Q3

REPORT INFORMATION
  Report Type: Spontaneous
  Country: US (occurrence: US)
  Receive Date: 20190730
  Receipt Date: 20190823
  Transmission Date: 20191004
  Serious: Yes (Disabling, Other)
  Sender: FDA-Public Use
  Company Number: US-ROCHE-2364929

PATIENT
  Age: 67 Year
  Sex: Male
  Weight: 96.8 kg

DRUGS (4)
  1. ACTIVASE [Suspect]
     Active Substance: ALTEPLASE
     Indication: CEREBROVASCULAR ACCIDENT
     Dosage: ONCE
     Route: 042
     Dates: start: 20190710, end: 20190711
  2. LOVENOX [Concomitant]
     Active Substance: ENOXAPARIN SODIUM
     Indication: PULMONARY EMBOLISM
     Dosage: ONCE AT 13:17
     Route: 058
     Dates: start: 20190710
  3. ACTIVASE [Suspect]
     Active Substance: ALTEPLASE
     Indication: HYPOAESTHESIA
  4. ACTIVASE [Suspect]
     Active Substance: ALTEPLASE
     Indication: MUSCULAR WEAKNESS

REACTIONS (6)
  - Spinal cord compression [Unknown]
  - Spinal deformity [Unknown]
  - Inappropriate schedule of product administration [Unknown]
  - Paraplegia [Not Recovered/Not Resolved]
  - Subarachnoid haemorrhage [Unknown]
  - Muscular weakness [Unknown]

NARRATIVE: CASE EVENT DATE: 20190710
